FAERS Safety Report 6082225-5 (Version None)
Quarter: 2009Q1

REPORT INFORMATION
  Report Type: 
  Country: None (occurrence: None)
  Receive Date: 20090218
  Receipt Date: 20090216
  Transmission Date: 20090719
  Serious: Yes (Death)
  Sender: FDA-Public Use
  Company Number: US-BAYER-200814796BCC

PATIENT
  Sex: Female

DRUGS (1)
  1. BACTINE PAIN RELIEVING CLEANSING SPRAY [Suspect]
     Indication: SUICIDAL IDEATION

REACTIONS (1)
  - DEATH [None]
